FAERS Safety Report 18747821 (Version 10)
Quarter: 2025Q2

REPORT INFORMATION
  Report Type: Spontaneous
  Country: US (occurrence: US)
  Receive Date: 20210115
  Receipt Date: 20250505
  Transmission Date: 20250717
  Serious: Yes (Other)
  Sender: PFIZER
  Company Number: US-PFIZER INC-2021024430

PATIENT
  Age: 71 Year
  Sex: Female

DRUGS (9)
  1. IBRANCE [Suspect]
     Active Substance: PALBOCICLIB
     Indication: Breast cancer female
     Route: 048
  2. IBRANCE [Suspect]
     Active Substance: PALBOCICLIB
     Route: 048
     Dates: start: 20210121
  3. IBRANCE [Suspect]
     Active Substance: PALBOCICLIB
     Route: 048
     Dates: start: 20210122
  4. IBRANCE [Suspect]
     Active Substance: PALBOCICLIB
     Route: 048
     Dates: start: 20210208, end: 20210302
  5. IBRANCE [Suspect]
     Active Substance: PALBOCICLIB
     Route: 048
     Dates: start: 20210603
  6. IBRANCE [Suspect]
     Active Substance: PALBOCICLIB
     Route: 048
  7. FASLODEX [Concomitant]
     Active Substance: FULVESTRANT
     Indication: Breast cancer female
  8. ZOMETA [Concomitant]
     Active Substance: ZOLEDRONIC ACID
  9. CALCIUM CARBONATE\CHOLECALCIFEROL [Concomitant]
     Active Substance: CALCIUM CARBONATE\CHOLECALCIFEROL

REACTIONS (23)
  - Metastases to bone [Unknown]
  - Breast cancer female [Unknown]
  - Malignant neoplasm progression [Unknown]
  - Metastases to liver [Unknown]
  - Glomerular filtration rate decreased [Unknown]
  - Renal cyst [Unknown]
  - Lung disorder [Unknown]
  - Intervertebral disc protrusion [Unknown]
  - Fatigue [Unknown]
  - Tenderness [Recovered/Resolved]
  - Nightmare [Unknown]
  - Alopecia [Unknown]
  - COVID-19 [Recovering/Resolving]
  - Salivary hypersecretion [Unknown]
  - Dry skin [Unknown]
  - Pruritus [Unknown]
  - Back pain [Unknown]
  - Abdominal pain [Unknown]
  - Back pain [Unknown]
  - Herpes zoster [Unknown]
  - Rash vesicular [Unknown]
  - Rash pruritic [Unknown]
  - Burning sensation [Unknown]

NARRATIVE: CASE EVENT DATE: 20191227
